FAERS Safety Report 17736265 (Version 1)
Quarter: 2020Q2

REPORT INFORMATION
  Report Type: Spontaneous
  Country: TW (occurrence: TW)
  Receive Date: 20200501
  Receipt Date: 20200501
  Transmission Date: 20200714
  Serious: Yes (Death)
  Sender: FDA-Public Use
  Company Number: TW-ELI_LILLY_AND_COMPANY-TW202004010395

PATIENT
  Age: 56 Year
  Sex: Female

DRUGS (2)
  1. LARTRUVO [Suspect]
     Active Substance: OLARATUMAB
     Indication: SOFT TISSUE SARCOMA
     Dosage: 500 MG, CYCLICAL
     Route: 042
     Dates: start: 20181105
  2. LARTRUVO [Suspect]
     Active Substance: OLARATUMAB
     Dosage: 500 MG, CYCLICAL
     Route: 042
     Dates: end: 20200327

REACTIONS (1)
  - Post procedural sepsis [Fatal]
